FAERS Safety Report 17752143 (Version 10)
Quarter: 2020Q4

REPORT INFORMATION
  Report Type: Spontaneous
  Country: US (occurrence: US)
  Receive Date: 20200506
  Receipt Date: 20201217
  Transmission Date: 20210113
  Serious: Yes (Hospitalization)
  Sender: FDA-Public Use
  Company Number: US-PFIZER INC-2020179218

PATIENT
  Age: 89 Year
  Sex: Female

DRUGS (1)
  1. CLEOCIN [Suspect]
     Active Substance: CLINDAMYCIN PHOSPHATE
     Indication: SINUSITIS
     Dosage: 300 MG, 3X/DAY
     Route: 048

REACTIONS (11)
  - Brain neoplasm [Unknown]
  - Cough [Unknown]
  - Fall [Recovered/Resolved]
  - Dizziness [Unknown]
  - Eye infection [Unknown]
  - Vertigo [Unknown]
  - Seizure [Unknown]
  - Epistaxis [Unknown]
  - Concussion [Unknown]
  - Feeling abnormal [Unknown]
  - Speech disorder [Unknown]
